FAERS Safety Report 17285578 (Version 3)
Quarter: 2020Q1

REPORT INFORMATION
  Report Type: Report from Study
  Country: US (occurrence: US)
  Receive Date: 20200117
  Receipt Date: 20200207
  Transmission Date: 20200409
  Serious: Yes (Other)
  Sender: FDA-Public Use
  Company Number: NVSC2020US007561

PATIENT
  Age: 21 Year
  Sex: Female

DRUGS (1)
  1. GILENYA [Suspect]
     Active Substance: FINGOLIMOD HYDROCHLORIDE
     Indication: MULTIPLE SCLEROSIS
     Dosage: 0.5 MG, QD
     Route: 048
     Dates: start: 20191226

REACTIONS (11)
  - Multiple sclerosis relapse [Unknown]
  - Bronchitis [Unknown]
  - Headache [Not Recovered/Not Resolved]
  - Confusional state [Unknown]
  - Malaise [Unknown]
  - Hypoaesthesia [Unknown]
  - Nasopharyngitis [Unknown]
  - Feeling abnormal [Unknown]
  - Fatigue [Recovered/Resolved]
  - Back pain [Not Recovered/Not Resolved]
  - Sensory loss [Unknown]

NARRATIVE: CASE EVENT DATE: 20191226
